FAERS Safety Report 9163602 (Version 2)
Quarter: 2013Q2

REPORT INFORMATION
  Report Type: Spontaneous
  Country: JP (occurrence: JP)
  Receive Date: 20130314
  Receipt Date: 20130412
  Transmission Date: 20140414
  Serious: Yes (Other)
  Sender: FDA-Public Use
  Company Number: PHHY2013JP024087

PATIENT
  Age: 68 Year
  Sex: Male

DRUGS (9)
  1. VOLTAREN [Suspect]
     Indication: PAIN MANAGEMENT
     Dosage: UNK UKN, UNK
     Route: 048
  2. OPIOIDS [Concomitant]
  3. OXINORM//OXYCODONE HYDROCHLORIDE [Concomitant]
     Dosage: UNK UKN, UNK
     Route: 048
  4. DUROTEP [Concomitant]
     Dosage: UNK UKN, UNK
     Route: 061
  5. LENDEM [Concomitant]
     Dosage: UNK UKN, UNK
     Route: 048
  6. CALONAL [Concomitant]
     Dosage: UNK UKN, UNK
  7. MAGMITT [Concomitant]
     Dosage: UNK UKN, UNK
  8. GASMOTIN [Concomitant]
     Dosage: UNK UKN, UNK
  9. MYSLEE [Concomitant]
     Dosage: UNK UKN, UNK

REACTIONS (1)
  - Gastrointestinal obstruction [Unknown]
